FAERS Safety Report 8161676-9 (Version None)
Quarter: 2012Q1

REPORT INFORMATION
  Report Type: 
  Country: None (occurrence: None)
  Receive Date: 20120224
  Receipt Date: 20120214
  Transmission Date: 20120608
  Serious: Yes (Hospitalization)
  Sender: FDA-Public Use
  Company Number: FR-JNJFOC-20120208266

PATIENT
  Age: 60 Year
  Sex: Male

DRUGS (2)
  1. RHEUMATREX [Concomitant]
     Route: 048
     Dates: start: 20110101
  2. REMICADE [Suspect]
     Indication: PRODUCT USED FOR UNKNOWN INDICATION
     Dosage: 3 MG
     Route: 042
     Dates: start: 20010101, end: 20111114

REACTIONS (3)
  - ATYPICAL FIBROXANTHOMA [None]
  - SEBORRHOEIC KERATOSIS [None]
  - ACTINIC KERATOSIS [None]
